FAERS Safety Report 5029042-2 (Version None)
Quarter: 2006Q2

REPORT INFORMATION
  Report Type: 
  Country: None (occurrence: None)
  Receive Date: 20060613
  Receipt Date: 20060601
  Transmission Date: 20061013
  Serious: Yes (Other)
  Sender: FDA-Public Use
  Company Number: SPVI-2006-00003

PATIENT
  Sex: 0

DRUGS (1)
  1. MESALAMINE [Suspect]
     Indication: INFLAMMATORY BOWEL DISEASE

REACTIONS (1)
  - CHRONIC ALLOGRAFT NEPHROPATHY [None]
